FAERS Safety Report 6474951-0 (Version None)
Quarter: 2009Q4

REPORT INFORMATION
  Report Type: 
  Country: None (occurrence: None)
  Receive Date: 20091204
  Receipt Date: 20090507
  Transmission Date: 20100525
  Serious: Yes (Other)
  Sender: FDA-Public Use
  Company Number: AU-ELI_LILLY_AND_COMPANY-AU200904000599

PATIENT
  Sex: Male
  Weight: 42.6 kg

DRUGS (3)
  1. STRATTERA [Suspect]
     Indication: ANXIETY
     Dosage: 18 MG, UNKNOWN
     Route: 048
     Dates: start: 20090206, end: 20090212
  2. STRATTERA [Suspect]
     Dosage: 25 MG, EACH MORNING
     Route: 048
     Dates: start: 20090213, end: 20090219
  3. STRATTERA [Suspect]
     Dosage: 50 MG, EACH MORNING
     Route: 048
     Dates: start: 20090220, end: 20090402

REACTIONS (4)
  - ABDOMINAL PAIN UPPER [None]
  - DISTURBANCE IN ATTENTION [None]
  - MALAISE [None]
  - WEIGHT DECREASED [None]
